FAERS Safety Report 5455387-8 (Version None)
Quarter: 2007Q3

REPORT INFORMATION
  Report Type: 
  Country: None (occurrence: None)
  Receive Date: 20070918
  Receipt Date: 20070702
  Transmission Date: 20080115
  Serious: Yes (Other)
  Sender: FDA-Public Use
  Company Number: US-ASTRAZENECA-2006UW21077

PATIENT
  Sex: Female
  Weight: 61.4 kg

DRUGS (13)
  1. SEROQUEL [Suspect]
     Indication: PANIC DISORDER
     Route: 048
     Dates: start: 20020101, end: 20061201
  2. EFFEXOR [Concomitant]
  3. ZOLOFT [Concomitant]
  4. BUSPAR [Concomitant]
  5. NEUROMIN [Concomitant]
  6. CELEXA [Concomitant]
  7. PROZAC [Concomitant]
  8. CYMBALTA [Concomitant]
  9. LUVOX [Concomitant]
  10. NORTRIPTYLINE HYDROCHLORIDE [Concomitant]
  11. PROPRANOLOL [Concomitant]
  12. ALPRAZOLAM [Concomitant]
  13. KLONAPIN [Concomitant]

REACTIONS (3)
  - DIABETES MELLITUS [None]
  - DIABETIC COMA [None]
  - DIABETIC KETOACIDOSIS [None]
